FAERS Safety Report 4726232-0 (Version None)
Quarter: 2005Q3

REPORT INFORMATION
  Report Type: 
  Country: None (occurrence: None)
  Receive Date: 20050727
  Receipt Date: 20050721
  Transmission Date: 20060218
  Serious: Yes (Life-Threatening)
  Sender: FDA-Public Use
  Company Number: KR-SANOFI-SYNTHELABO-A01200505038

PATIENT
  Sex: Female

DRUGS (3)
  1. ELOXATIN [Suspect]
     Indication: COLON CANCER
     Dates: start: 20050721, end: 20050721
  2. FLUOROURACIL [Concomitant]
     Indication: COLON CANCER
     Dosage: BOLUS 400, INFUSION 600 MG/M2
     Route: 042
     Dates: start: 20050501
  3. LEUCOVORIN [Concomitant]
     Indication: COLON CANCER
     Dates: start: 20050501

REACTIONS (2)
  - HYPOTENSION [None]
  - SHOCK [None]
